FAERS Safety Report 7853263-4 (Version None)
Quarter: 2011Q4

REPORT INFORMATION
  Report Type: 
  Country: None (occurrence: None)
  Receive Date: 20111026
  Receipt Date: 20111019
  Transmission Date: 20120403
  Serious: Yes (Hospitalization)
  Sender: FDA-Public Use
  Company Number: IT-ASTRAZENECA-2011SE62354

PATIENT
  Age: 30883 Day
  Sex: Male

DRUGS (9)
  1. ENALAPRIL MALEATE [Suspect]
     Route: 048
  2. COUMADIN [Suspect]
     Indication: ATRIAL FIBRILLATION
     Route: 048
     Dates: start: 20080101
  3. ATENOLOL [Suspect]
     Route: 048
     Dates: start: 20070101, end: 20110815
  4. ESKIM OMEGA POLYAENUS [Suspect]
     Route: 048
  5. FUROSEMIDE [Suspect]
     Route: 048
  6. GLUCOPHAGE [Suspect]
     Indication: TYPE 2 DIABETES MELLITUS
     Route: 048
  7. LEVOTHYROXINE SODIUM [Suspect]
     Route: 048
  8. FLECAINIDE ACETATE [Suspect]
     Indication: ATRIAL FIBRILLATION
     Route: 048
     Dates: start: 20070101, end: 20110814
  9. ALLOPURINOL [Suspect]
     Route: 048

REACTIONS (4)
  - SYNCOPE [None]
  - SINUS BRADYCARDIA [None]
  - LOSS OF CONSCIOUSNESS [None]
  - HEAD INJURY [None]
